FAERS Safety Report 10222845 (Version 3)
Quarter: 2014Q2

REPORT INFORMATION
  Report Type: Spontaneous
  Country: FR (occurrence: FR)
  Receive Date: 20140606
  Receipt Date: 20140609
  Transmission Date: 20141212
  Serious: Yes (Other)
  Sender: FDA-Public Use
  Company Number: FR-ABBVIE-14P-056-1197896-00

PATIENT
  Age: 62 Year
  Sex: Female
  Weight: 57 kg

DRUGS (4)
  1. HUMIRA [Suspect]
     Indication: PSORIATIC ARTHROPATHY
     Dates: start: 2009, end: 2013
  2. OPTRUMA [Concomitant]
     Indication: OSTEOPOROSIS PROPHYLAXIS
     Route: 048
     Dates: start: 2008
  3. INEGY [Concomitant]
     Indication: DYSLIPIDAEMIA
     Route: 048
     Dates: start: 2008
  4. BI PROFENID [Concomitant]
     Indication: ARTHRALGIA
     Route: 048
     Dates: start: 2008

REACTIONS (2)
  - Panniculitis [Recovering/Resolving]
  - Skin lesion [Unknown]
